FAERS Safety Report 9681010 (Version 1)
Quarter: 2013Q4

REPORT INFORMATION
  Report Type: Spontaneous
  Country: JP (occurrence: JP)
  Receive Date: 20131111
  Receipt Date: 20131111
  Transmission Date: 20140711
  Serious: Yes (Other)
  Sender: FDA-Public Use
  Company Number: JP-ASTELLAS-2013JP012354

PATIENT
  Age: 83 Year
  Sex: Male

DRUGS (6)
  1. BETANIS [Suspect]
     Indication: POLLAKIURIA
     Route: 048
  2. HARNAL [Concomitant]
     Route: 048
  3. NORVASC [Concomitant]
     Route: 048
  4. ANGINAL                            /00042901/ [Concomitant]
     Route: 048
  5. EVIPROSTAT                         /00833501/ [Concomitant]
     Route: 048
  6. MAGLAX [Concomitant]
     Route: 048

REACTIONS (1)
  - Arrhythmia [Unknown]
